FAERS Safety Report 4447475-X (Version None)
Quarter: 2004Q3

REPORT INFORMATION
  Report Type: 
  Country: None (occurrence: None)
  Receive Date: 20040823
  Receipt Date: 20040505
  Transmission Date: 20050211
  Serious: No
  Sender: FDA-Public Use
  Company Number: PHEH2004US05006

PATIENT
  Age: 33 Year
  Sex: Female

DRUGS (2)
  1. ZELNORM [Suspect]
     Indication: IRRITABLE BOWEL SYNDROME
     Dosage: SEE IMAGE
     Route: 048
     Dates: start: 20040427, end: 20040503
  2. PROTONIX [Concomitant]

REACTIONS (3)
  - ANXIETY [None]
  - APATHY [None]
  - MOOD ALTERED [None]
